FAERS Safety Report 9199587 (Version 1)
Quarter: 2013Q1

REPORT INFORMATION
  Report Type: Spontaneous
  Country: US (occurrence: US)
  Receive Date: 20130329
  Receipt Date: 20130329
  Transmission Date: 20140127
  Serious: Yes (Death)
  Sender: FDA-Public Use
  Company Number: US-INCYTE CORPORATION-2012IN001441

PATIENT
  Age: 73 None
  Sex: Male

DRUGS (11)
  1. JAKAFI [Suspect]
     Indication: POLYCYTHAEMIA VERA
     Dosage: 20 MG, BID
     Route: 048
  2. JAKAFI [Suspect]
     Indication: MYELOFIBROSIS
  3. PLAVIX [Concomitant]
     Dosage: 75 MG, QD
  4. HYDRALAZINE HCL [Concomitant]
     Dosage: 50 MG, BID
  5. HYDROXYZINE [Concomitant]
     Dosage: 25 MG, QD
  6. LOSARTAN [Concomitant]
     Dosage: 100 MG, QD
  7. PANTOPRAZOLE [Concomitant]
     Dosage: 20 MG, BID
  8. FLUOXETINE [Concomitant]
     Dosage: 10 MG, QD
  9. FINASTERIDE [Concomitant]
     Dosage: 5 MG, QD
  10. CLINDAMYCIN HYDROCHLORIDE [Concomitant]
     Dosage: 1 %, QD
  11. VOLTAREN [Concomitant]
     Dosage: 1 %, UNK

REACTIONS (6)
  - Sudden cardiac death [Fatal]
  - Infection [Unknown]
  - Local swelling [Unknown]
  - Oropharyngeal pain [Not Recovered/Not Resolved]
  - Ear pain [Not Recovered/Not Resolved]
  - Therapeutic response unexpected [Unknown]
